FAERS Safety Report 18106674 (Version 4)
Quarter: 2020Q3

REPORT INFORMATION
  Report Type: Spontaneous
  Country: JP (occurrence: JP)
  Receive Date: 20200803
  Receipt Date: 20200915
  Transmission Date: 20201103
  Serious: Yes (Other)
  Sender: FDA-Public Use
  Company Number: JP-JNJFOC-20200744092

PATIENT
  Age: 26 Year
  Sex: Male

DRUGS (5)
  1. CONCERTA [Suspect]
     Active Substance: METHYLPHENIDATE HYDROCHLORIDE
     Dosage: TWO TABLETS/DAY, IN THE MORNING
     Route: 048
  2. CONCERTA [Suspect]
     Active Substance: METHYLPHENIDATE HYDROCHLORIDE
     Dosage: TWO TABLETS/DAY
     Route: 048
  3. CONCERTA [Suspect]
     Active Substance: METHYLPHENIDATE HYDROCHLORIDE
     Indication: ATTENTION DEFICIT HYPERACTIVITY DISORDER
     Dosage: DOSE UNKNOWN?18 MG
     Route: 048
     Dates: start: 201808
  4. ZOLPIDEM TARTRATE. [Concomitant]
     Active Substance: ZOLPIDEM TARTRATE
     Indication: SLEEP DISORDER
     Dosage: UNKNOWN
     Route: 048
  5. CONCERTA [Suspect]
     Active Substance: METHYLPHENIDATE HYDROCHLORIDE
     Route: 048

REACTIONS (15)
  - Dependence [Unknown]
  - Aggression [Unknown]
  - Withdrawal syndrome [Unknown]
  - Somnolence [Unknown]
  - Restlessness [Unknown]
  - Drug abuse [Unknown]
  - Accident [Unknown]
  - Irritability [Unknown]
  - Personality change [Unknown]
  - Overdose [Unknown]
  - Haemorrhage [Unknown]
  - Anger [Unknown]
  - Suicide attempt [Unknown]
  - Abnormal behaviour [Unknown]
  - Treatment noncompliance [Unknown]

NARRATIVE: CASE EVENT DATE: 2020
